FAERS Safety Report 10099085 (Version 2)
Quarter: 2014Q2

REPORT INFORMATION
  Report Type: Spontaneous
  Country: BR (occurrence: BR)
  Receive Date: 20140423
  Receipt Date: 20140606
  Transmission Date: 20141212
  Serious: Yes (Other)
  Sender: FDA-Public Use
  Company Number: BR-ASTRAZENECA-2014SE26444

PATIENT
  Age: 80 Year
  Sex: Female
  Weight: 70 kg

DRUGS (6)
  1. SELOZOK [Suspect]
     Indication: HYPERTENSION
     Route: 048
     Dates: start: 2009, end: 20140408
  2. SELOZOK [Suspect]
     Indication: HYPERTENSION
     Route: 048
     Dates: start: 20140409, end: 201404
  3. SELOZOK [Suspect]
     Indication: HYPERTENSION
     Route: 048
     Dates: start: 201404
  4. SELOZOK [Suspect]
     Indication: HYPERTENSION
     Route: 048
     Dates: start: 201404
  5. DESARCOR [Suspect]
     Indication: HYPERTENSION
     Dosage: DAILY
     Route: 048
     Dates: start: 2009
  6. VYTORIN [Concomitant]
     Indication: HYPERCHOLESTEROLAEMIA
     Dosage: 10/20MG DAILY
     Route: 048

REACTIONS (3)
  - Iliac artery occlusion [Not Recovered/Not Resolved]
  - Extrasystoles [Recovered/Resolved]
  - Off label use [Not Recovered/Not Resolved]
